FAERS Safety Report 10495982 (Version 2)
Quarter: 2014Q4

REPORT INFORMATION
  Report Type: Report from Study
  Country: US (occurrence: US)
  Receive Date: 20141003
  Receipt Date: 20141113
  Transmission Date: 20150528
  Serious: No
  Sender: FDA-Public Use
  Company Number: US-ELI_LILLY_AND_COMPANY-US201409010257

PATIENT
  Age: 80 Year
  Sex: Female

DRUGS (3)
  1. TERIPARATIDE [Suspect]
     Active Substance: TERIPARATIDE
     Dosage: UNK UNK, QD
     Route: 065
  2. TERIPARATIDE [Suspect]
     Active Substance: TERIPARATIDE
     Indication: OSTEOPOROSIS
     Dosage: UNK, QD
     Route: 065
     Dates: start: 20140919
  3. PROPANOLOL                         /00030001/ [Suspect]
     Active Substance: PROPRANOLOL HYDROCHLORIDE
     Dosage: 10 MG, QD
     Route: 065
     Dates: start: 20140923

REACTIONS (10)
  - Feeling jittery [Unknown]
  - Coordination abnormal [Unknown]
  - Dizziness [Recovered/Resolved]
  - Nervousness [Unknown]
  - Malaise [Unknown]
  - Hot flush [Unknown]
  - Disorientation [Unknown]
  - Tremor [Unknown]
  - Palpitations [Unknown]
  - Nausea [Recovered/Resolved]

NARRATIVE: CASE EVENT DATE: 20140919
